FAERS Safety Report 9401514 (Version 1)
Quarter: 2013Q3

REPORT INFORMATION
  Report Type: Spontaneous
  Country: AU (occurrence: AU)
  Receive Date: 20130716
  Receipt Date: 20130716
  Transmission Date: 20140515
  Serious: Yes (Life-Threatening, Hospitalization, Other)
  Sender: FDA-Public Use
  Company Number: AU-MERCK-1307AUS004903

PATIENT
  Age: 49 Year
  Sex: Male

DRUGS (8)
  1. ERTAPENEM SODIUM [Suspect]
     Dosage: 1 G, QD
     Dates: start: 20130419, end: 20130423
  2. TACROLIMUS [Suspect]
     Dosage: 8 MG, QD
     Dates: end: 201304
  3. TACROLIMUS [Suspect]
     Dosage: LOWER DOSE
  4. METFORMIN HYDROCHLORIDE [Suspect]
     Dosage: UNK
     Dates: end: 201304
  5. TEICOPLANIN [Suspect]
     Dosage: 800 MG, QD
     Dates: start: 20130215, end: 201304
  6. FLUCONAZOLE [Concomitant]
  7. OXYCODONE HYDROCHLORIDE [Concomitant]
  8. FUROSEMIDE [Concomitant]
     Route: 048

REACTIONS (6)
  - Delusion [Not Recovered/Not Resolved]
  - Renal failure acute [Not Recovered/Not Resolved]
  - Acute psychosis [Not Recovered/Not Resolved]
  - Delusion [Not Recovered/Not Resolved]
  - Agitation [Not Recovered/Not Resolved]
  - Delirium [Not Recovered/Not Resolved]
